FAERS Safety Report 9527654 (Version 1)
Quarter: 2013Q1

REPORT INFORMATION
  Report Type: Spontaneous
  Country: US (occurrence: None)
  Receive Date: 20130314
  Receipt Date: 20130314
  Transmission Date: 20140127
  Serious: No
  Sender: FDA-Public Use
  Company Number: HRA-CDB20130019

PATIENT
  Sex: Female

DRUGS (1)
  1. ELLA [Suspect]
     Indication: CONTRACEPTION
     Dosage: 30 MG, (30 MG,1 IN 1 D),ORAL
     Route: 048
     Dates: start: 20120821, end: 20120821

REACTIONS (4)
  - Abdominal pain [None]
  - Food craving [None]
  - Flatulence [None]
  - Breast tenderness [None]
